FAERS Safety Report 10713734 (Version 4)
Quarter: 2015Q2

REPORT INFORMATION
  Report Type: Spontaneous
  Country: JP (occurrence: JP)
  Receive Date: 20150115
  Receipt Date: 20150414
  Transmission Date: 20150821
  Serious: Yes (Death, Hospitalization, Other)
  Sender: FDA-Public Use
  Company Number: JP-PFIZER INC-2015014933

PATIENT
  Age: 45 Year
  Sex: Male
  Weight: 52 kg

DRUGS (7)
  1. CAMPTO [Suspect]
     Active Substance: IRINOTECAN
     Dosage: 240 MG/BODY (149.8 MG/M2), 1X/DAY
     Route: 041
     Dates: start: 20140903, end: 20140903
  2. 5-FU [Concomitant]
     Active Substance: FLUOROURACIL
     Indication: PANCREATIC CARCINOMA
     Dosage: 625 MG/BODY (390.1 MG/M2), UNK
     Route: 040
     Dates: start: 20140725, end: 20140903
  3. CAMPTO [Suspect]
     Active Substance: IRINOTECAN
     Indication: PANCREATIC CARCINOMA
     Dosage: 280 MG/BODY (174.8 MG/M2), 1X/DAY
     Route: 041
     Dates: start: 20140725, end: 20140725
  4. ELPLAT [Suspect]
     Active Substance: OXALIPLATIN
     Indication: PANCREATIC CARCINOMA
     Dosage: 130 MG/BODY (81.1 MG/M2), 1X/DAY
     Route: 041
     Dates: start: 20140725, end: 20140725
  5. CALCIUM LEVOFOLINATE [Concomitant]
     Active Substance: LEVOLEUCOVORIN CALCIUM
     Indication: PANCREATIC CARCINOMA
     Dosage: 300 MG/BODY (187.3 MG/M2)
     Dates: start: 20140725
  6. 5-FU [Concomitant]
     Active Substance: FLUOROURACIL
     Dosage: 3800 MG/BODY/D1-2 (2372 MG/M2/D1-2), AS CONTINUOUS INFUSION, CYCLIC
     Route: 041
     Dates: start: 20140725
  7. ELPLAT [Suspect]
     Active Substance: OXALIPLATIN
     Dosage: 130 MG/BODY (81.1 MG/M2), 1X/DAY
     Route: 041
     Dates: start: 20140903, end: 20140903

REACTIONS (12)
  - Akathisia [Recovered/Resolved]
  - Febrile neutropenia [Unknown]
  - Nausea [Unknown]
  - Disease progression [Fatal]
  - Pancreatic carcinoma [Fatal]
  - Neutrophil count decreased [Unknown]
  - Diarrhoea [Unknown]
  - Decreased appetite [Unknown]
  - Pyrexia [Unknown]
  - Peripheral sensory neuropathy [Unknown]
  - White blood cell count decreased [Unknown]
  - Fatigue [Unknown]

NARRATIVE: CASE EVENT DATE: 20140726
